FAERS Safety Report 13668159 (Version 1)
Quarter: 2017Q2

REPORT INFORMATION
  Report Type: Spontaneous
  Country: US (occurrence: US)
  Receive Date: 20170620
  Receipt Date: 20170620
  Transmission Date: 20170830
  Serious: No
  Sender: FDA-Public Use
  Company Number: US-PFIZER INC-2017265677

PATIENT
  Sex: Male

DRUGS (3)
  1. LYRICA [Suspect]
     Active Substance: PREGABALIN
     Indication: DIABETIC NEUROPATHY
     Dosage: 75 MG, 3X/DAY
  2. LYRICA [Suspect]
     Active Substance: PREGABALIN
     Indication: DEMENTIA
  3. LYRICA [Suspect]
     Active Substance: PREGABALIN
     Indication: PERONEAL NERVE PALSY

REACTIONS (1)
  - Drug effect incomplete [Unknown]
